FAERS Safety Report 6978680-6 (Version None)
Quarter: 2010Q3

REPORT INFORMATION
  Report Type: 
  Country: None (occurrence: None)
  Receive Date: 20100913
  Receipt Date: 20100907
  Transmission Date: 20110219
  Serious: Yes (Hospitalization)
  Sender: FDA-Public Use
  Company Number: A0879867A

PATIENT
  Age: 72 Year
  Sex: Female

DRUGS (13)
  1. COREG [Suspect]
     Dosage: 25MG TWICE PER DAY
     Route: 048
     Dates: start: 19950101
  2. COLCHICINE [Concomitant]
  3. LASIX [Concomitant]
  4. ALLOPURINOL [Concomitant]
  5. CLONIDINE [Concomitant]
  6. WARFARIN SODIUM [Concomitant]
  7. CALCITRIOL [Concomitant]
  8. PRAVASTATIN [Concomitant]
  9. EXFORGE [Concomitant]
  10. VITAMIN D [Concomitant]
  11. LANOXIN [Concomitant]
  12. LANTUS [Concomitant]
  13. HUMALOG [Concomitant]

REACTIONS (4)
  - DYSPHONIA [None]
  - DYSPNOEA [None]
  - MULTIPLE ALLERGIES [None]
  - PERICARDIAL EFFUSION [None]
